FAERS Safety Report 4328052-8 (Version None)
Quarter: 2004Q1

REPORT INFORMATION
  Report Type: 
  Country: None (occurrence: None)
  Receive Date: 20040331
  Receipt Date: 20040323
  Transmission Date: 20041129
  Serious: Yes (Hospitalization)
  Sender: FDA-Public Use
  Company Number: JP-MERCK-0403USA02318

PATIENT
  Sex: Female

DRUGS (1)
  1. PEPCID [Suspect]
     Route: 042

REACTIONS (1)
  - SHOCK [None]
